FAERS Safety Report 24693135 (Version 1)
Quarter: 2024Q4

REPORT INFORMATION
  Report Type: Spontaneous
  Country: CN (occurrence: CN)
  Receive Date: 20241203
  Receipt Date: 20241203
  Transmission Date: 20250115
  Serious: Yes (Other)
  Sender: BEIGENE
  Company Number: CN-BEIGENE-BGN-2024-019165

PATIENT

DRUGS (3)
  1. TISLELIZUMAB [Suspect]
     Active Substance: TISLELIZUMAB
     Indication: Nasopharyngeal cancer
     Dosage: 200 MILLIGRAM D1
     Route: 041
     Dates: start: 20241004
  2. CISPLATIN [Suspect]
     Active Substance: CISPLATIN
     Indication: Nasopharyngeal cancer
     Dosage: 42 MILLIGRAM D1-D3
     Route: 041
     Dates: start: 20241004
  3. GEMCITABINE [Suspect]
     Active Substance: GEMCITABINE
     Indication: Nasopharyngeal cancer
     Dosage: 1.6 GRAM D1
     Route: 041
     Dates: start: 20241004

REACTIONS (4)
  - White blood cell count decreased [Recovering/Resolving]
  - Neutrophil count decreased [Recovering/Resolving]
  - Haemoglobin decreased [Not Recovered/Not Resolved]
  - Platelet count decreased [Recovering/Resolving]

NARRATIVE: CASE EVENT DATE: 20221022
